FAERS Safety Report 6984417-7 (Version None)
Quarter: 2010Q3

REPORT INFORMATION
  Report Type: 
  Country: None (occurrence: None)
  Receive Date: 20100915
  Receipt Date: 20100903
  Transmission Date: 20110219
  Serious: Yes (Life-Threatening, Hospitalization)
  Sender: FDA-Public Use
  Company Number: CH-WYE-G06624210

PATIENT
  Age: 38 Year
  Sex: Male
  Weight: 113 kg

DRUGS (21)
  1. VENLAFAXINE HYDROCHLORIDE [Suspect]
     Dosage: 150-300 MG PER DAY
     Route: 048
     Dates: start: 20090923, end: 20100401
  2. VENLAFAXINE HYDROCHLORIDE [Suspect]
     Route: 048
     Dates: start: 20100402, end: 20100525
  3. VENLAFAXINE HYDROCHLORIDE [Suspect]
     Route: 048
     Dates: start: 20100526, end: 20100624
  4. VENLAFAXINE HYDROCHLORIDE [Suspect]
     Dosage: POST-OPERATIVE DOSE UNKNOWN
     Dates: start: 20100101
  5. WELLBUTRIN [Suspect]
     Route: 048
     Dates: start: 20100527, end: 20100530
  6. WELLBUTRIN [Suspect]
     Route: 048
     Dates: start: 20100531, end: 20100624
  7. TEMESTA [Suspect]
     Dosage: 4.5 TO 7.5 MG PER DAY
     Route: 048
     Dates: start: 20100512, end: 20100611
  8. TEMESTA [Suspect]
     Route: 048
     Dates: start: 20100612, end: 20100616
  9. TEMESTA [Suspect]
     Route: 048
     Dates: start: 20100617, end: 20100618
  10. TEMESTA [Suspect]
     Route: 048
     Dates: start: 20100619, end: 20100624
  11. FRAXIPARINE [Concomitant]
     Indication: THROMBOSIS PROPHYLAXIS
     Dates: start: 20100525, end: 20100610
  12. LYRICA [Suspect]
     Route: 048
     Dates: start: 20100402, end: 20100618
  13. LYRICA [Suspect]
     Route: 048
     Dates: start: 20100619, end: 20100624
  14. INVEGA [Suspect]
     Route: 048
     Dates: start: 20100617, end: 20100622
  15. INVEGA [Suspect]
     Route: 048
     Dates: start: 20100623
  16. SEROQUEL XR [Concomitant]
     Dosage: 300-400 MG PER DAY
     Dates: start: 20100101, end: 20100525
  17. SEROQUEL XR [Concomitant]
     Dosage: UNKNOWN
     Dates: start: 20100101
  18. NOZINAN [Concomitant]
     Dosage: 50-100 MG PER DAY
     Dates: start: 20100101, end: 20100616
  19. LITHIOFOR [Suspect]
     Dosage: 330 TO 660 MG PER DAY
     Route: 048
     Dates: start: 20100519, end: 20100524
  20. LITHIOFOR [Suspect]
     Route: 048
     Dates: start: 20100525, end: 20100624
  21. PANTOPRAZOLE SODIUM [Concomitant]
     Route: 048
     Dates: start: 20100617, end: 20100624

REACTIONS (16)
  - ARTERIAL THROMBOSIS [None]
  - ATRIAL SEPTAL DEFECT [None]
  - BLOOD CREATININE INCREASED [None]
  - CONDITION AGGRAVATED [None]
  - DIZZINESS [None]
  - EMBOLISM ARTERIAL [None]
  - FATIGUE [None]
  - MAJOR DEPRESSION [None]
  - MALAISE [None]
  - PERIPHERAL COLDNESS [None]
  - PERIPHERAL ISCHAEMIA [None]
  - PULMONARY EMBOLISM [None]
  - SEDATION [None]
  - SUICIDAL IDEATION [None]
  - SUICIDE ATTEMPT [None]
  - TACHYCARDIA [None]
